FAERS Safety Report 9564057 (Version 1)
Quarter: 2013Q3

REPORT INFORMATION
  Report Type: Spontaneous
  Country: CA (occurrence: CA)
  Receive Date: 20130928
  Receipt Date: 20130928
  Transmission Date: 20140515
  Serious: Yes (Death, Hospitalization)
  Sender: FDA-Public Use
  Company Number: CA-BRISTOL-MYERS SQUIBB COMPANY-19425123

PATIENT
  Age: 67 Year
  Sex: Female
  Weight: 50.6 kg

DRUGS (1)
  1. HYDROXYCARBAMIDE [Suspect]

REACTIONS (2)
  - Febrile neutropenia [Fatal]
  - Malignant neoplasm progression [Fatal]
